FAERS Safety Report 16379756 (Version 1)
Quarter: 2019Q2

REPORT INFORMATION
  Report Type: Spontaneous
  Country: FR (occurrence: FR)
  Receive Date: 20190531
  Receipt Date: 20190531
  Transmission Date: 20190711
  Serious: Yes (Death)
  Sender: FDA-Public Use
  Company Number: FR-MYLANLABS-2019M1050569

PATIENT
  Age: 60 Year
  Sex: Female

DRUGS (4)
  1. CELOCURINE                         /00057704/ [Suspect]
     Active Substance: SUCCINYLCHOLINE IODIDE
     Indication: GENERAL ANAESTHESIA
     Dosage: 100 MILLIGRAM, UNK
     Route: 042
     Dates: start: 20181011, end: 20181011
  2. REMIFENTANIL [Suspect]
     Active Substance: REMIFENTANIL
     Indication: GENERAL ANAESTHESIA
     Dosage: 250 MILLIGRAM
     Route: 042
     Dates: start: 20181011, end: 20181011
  3. PROPOFOL. [Suspect]
     Active Substance: PROPOFOL
     Indication: GENERAL ANAESTHESIA
     Dosage: 1 GAMMA/KG/MINUTE
     Route: 042
     Dates: start: 20181011, end: 20181011
  4. CELOCURINE                         /00057702/ [Suspect]
     Active Substance: SUCCINYLCHOLINE CHLORIDE
     Indication: GENERAL ANAESTHESIA
     Dosage: 100 MILLIGRAM
     Route: 042
     Dates: start: 20181011, end: 20181011

REACTIONS (1)
  - Anaphylactic shock [Fatal]

NARRATIVE: CASE EVENT DATE: 20181011
